FAERS Safety Report 7644852-0 (Version None)
Quarter: 2011Q3

REPORT INFORMATION
  Report Type: 
  Country: None (occurrence: None)
  Receive Date: 20110725
  Receipt Date: 20110712
  Transmission Date: 20111222
  Serious: Yes (Hospitalization)
  Sender: FDA-Public Use
  Company Number: 2010P1002574

PATIENT
  Age: 55 Year
  Sex: Female
  Weight: 56.246 kg

DRUGS (2)
  1. FENTANYL [Suspect]
     Indication: FIBROMYALGIA
     Dosage: 25 MCG/HR, Q48H, TDER
     Route: 062
     Dates: start: 20100801
  2. FENTANYL [Suspect]

REACTIONS (12)
  - INSOMNIA [None]
  - MOVEMENT DISORDER [None]
  - DRUG EFFECT DECREASED [None]
  - PRODUCT SUBSTITUTION ISSUE [None]
  - PRODUCT ADHESION ISSUE [None]
  - INFLUENZA [None]
  - DEHYDRATION [None]
  - FEELING ABNORMAL [None]
  - UNEVALUABLE EVENT [None]
  - WITHDRAWAL SYNDROME [None]
  - FORMICATION [None]
  - EATING DISORDER [None]
